FAERS Safety Report 17290316 (Version 2)
Quarter: 2020Q1

REPORT INFORMATION
  Report Type: Report from Study
  Country: SA (occurrence: SA)
  Receive Date: 20200121
  Receipt Date: 20200203
  Transmission Date: 20200409
  Serious: Yes (Hospitalization, Other)
  Sender: FDA-Public Use
  Company Number: SA-BRISTOL-MYERS SQUIBB COMPANY-BMS-2019-125694

PATIENT
  Age: 62 Year
  Sex: Male
  Weight: 99.4 kg

DRUGS (1)
  1. APIXABAN [Suspect]
     Active Substance: APIXABAN
     Indication: CEREBROVASCULAR ACCIDENT PROPHYLAXIS
     Dosage: 5 MILLIGRAM, BID
     Route: 048
     Dates: start: 20190519, end: 20191117

REACTIONS (4)
  - Blood urea abnormal [Unknown]
  - Urinary retention [Unknown]
  - Pneumonia aspiration [Unknown]
  - Basilar artery thrombosis [Recovering/Resolving]

NARRATIVE: CASE EVENT DATE: 20191117
